FAERS Safety Report 19305201 (Version 1)
Quarter: 2021Q2

REPORT INFORMATION
  Report Type: Spontaneous
  Country: FR (occurrence: FR)
  Receive Date: 20210525
  Receipt Date: 20210525
  Transmission Date: 20210717
  Serious: Yes (Other)
  Sender: FDA-Public Use
  Company Number: FR-ASTRAZENECA-2021A458055

PATIENT
  Sex: Female

DRUGS (2)
  1. PLATINUM SALTS [UNSPECIFIED INGREDIENT] [Suspect]
     Active Substance: UNSPECIFIED INGREDIENT
     Route: 065
  2. OLAPARIB. [Suspect]
     Active Substance: OLAPARIB
     Route: 048

REACTIONS (1)
  - Acute myeloid leukaemia [Unknown]
